FAERS Safety Report 7743891-9 (Version None)
Quarter: 2011Q3

REPORT INFORMATION
  Report Type: 
  Country: None (occurrence: None)
  Receive Date: 20110912
  Receipt Date: 20110831
  Transmission Date: 20111222
  Serious: Yes (Hospitalization)
  Sender: FDA-Public Use
  Company Number: US-GLAXOSMITHKLINE-A0943764A

PATIENT
  Age: 56 Year
  Sex: Female

DRUGS (3)
  1. CARVEDILOL [Suspect]
     Indication: CARDIOMYOPATHY
     Dosage: 3.125MG TWICE PER DAY
     Dates: start: 20110715
  2. LUNESTA [Concomitant]
  3. RAMIPRIL [Concomitant]
     Indication: PRODUCT USED FOR UNKNOWN INDICATION
     Route: 065

REACTIONS (5)
  - ABDOMINAL PAIN [None]
  - CONSTIPATION [None]
  - GASTRIC DILATATION [None]
  - INTESTINAL OBSTRUCTION [None]
  - FUNCTIONAL GASTROINTESTINAL DISORDER [None]
